FAERS Safety Report 5663892-4 (Version None)
Quarter: 2008Q1

REPORT INFORMATION
  Report Type: 
  Country: None (occurrence: None)
  Receive Date: 20080311
  Receipt Date: 20080303
  Transmission Date: 20080703
  Serious: Yes (Death, Life-Threatening, Hospitalization, Disabling, Other)
  Sender: FDA-Public Use
  Company Number: ADE2008-0141

PATIENT
  Age: 34 Year
  Sex: Male
  Weight: 100 kg

DRUGS (4)
  1. SIMVASTATIN [Suspect]
     Dosage: 40MG QD PO
     Route: 048
     Dates: start: 20050101, end: 20071212
  2. ASPIRIN [Concomitant]
  3. AVANDAMET [Concomitant]
  4. FENOFIBRATE [Concomitant]

REACTIONS (3)
  - ABDOMINAL PAIN [None]
  - RENAL FAILURE [None]
  - TACHYPNOEA [None]
